FAERS Safety Report 10204640 (Version 4)
Quarter: 2015Q3

REPORT INFORMATION
  Report Type: Report from Study
  Country: US (occurrence: US)
  Receive Date: 20140529
  Receipt Date: 20150820
  Transmission Date: 20151125
  Serious: Yes (Other)
  Sender: FDA-Public Use
  Company Number: US-SA-2013SA123733

PATIENT
  Age: 50 Year
  Sex: Male

DRUGS (1)
  1. AUBAGIO [Suspect]
     Active Substance: TERIFLUNOMIDE
     Indication: MULTIPLE SCLEROSIS
     Route: 048
     Dates: start: 20130814

REACTIONS (13)
  - Wheelchair user [Unknown]
  - Cellulitis [Not Recovered/Not Resolved]
  - Oedema peripheral [Unknown]
  - Condition aggravated [Unknown]
  - Weight increased [Unknown]
  - Impaired healing [Not Recovered/Not Resolved]
  - Fall [Unknown]
  - Limb injury [Unknown]
  - Muscular weakness [Unknown]
  - Intervertebral disc protrusion [Unknown]
  - Blister [Not Recovered/Not Resolved]
  - Rash pruritic [Not Recovered/Not Resolved]
  - Pain in extremity [Unknown]

NARRATIVE: CASE EVENT DATE: 201502
